FAERS Safety Report 4594721-8 (Version None)
Quarter: 2005Q1

REPORT INFORMATION
  Report Type: 
  Country: None (occurrence: None)
  Receive Date: 20050301
  Receipt Date: 20050120
  Transmission Date: 20050727
  Serious: Yes (Hospitalization)
  Sender: FDA-Public Use
  Company Number: US-BRISTOL-MYERS SQUIBB COMPANY-12833778

PATIENT
  Sex: Female

DRUGS (5)
  1. ERBITUX [Suspect]
     Indication: COLORECTAL CANCER METASTATIC
     Route: 042
     Dates: start: 20050120
  2. BENADRYL [Concomitant]
     Indication: PREMEDICATION
     Route: 042
     Dates: start: 20050120, end: 20050120
  3. SOLU-MEDROL [Concomitant]
     Indication: PREMEDICATION
     Dates: start: 20050120, end: 20050120
  4. ZANTAC [Concomitant]
     Indication: PREMEDICATION
     Dates: start: 20050120, end: 20050120
  5. ZOFRAN [Concomitant]
     Indication: PREMEDICATION
     Dates: start: 20050120, end: 20050120

REACTIONS (5)
  - BLOOD PRESSURE DECREASED [None]
  - DYSPNOEA [None]
  - OBSTRUCTIVE AIRWAYS DISORDER [None]
  - PRURITUS [None]
  - RASH [None]
